FAERS Safety Report 4684101-9 (Version None)
Quarter: 2005Q2

REPORT INFORMATION
  Report Type: 
  Country: None (occurrence: None)
  Receive Date: 20050602
  Receipt Date: 20050119
  Transmission Date: 20051028
  Serious: No
  Sender: FDA-Public Use
  Company Number: USA050188809

PATIENT
  Age: 61 Year
  Sex: Female
  Weight: 58 kg

DRUGS (4)
  1. CYMBALTA [Suspect]
     Dosage: 60 MG DAY
     Dates: start: 20041210
  2. PREDNISONE [Concomitant]
  3. XANAX (ALPRAZOLAM DUM [Concomitant]
  4. ACTONEL (RISEDRONATE SODIU [Concomitant]

REACTIONS (3)
  - HEADACHE [None]
  - MUSCLE ATROPHY [None]
  - NOCTURIA [None]
